FAERS Safety Report 8209223-7 (Version None)
Quarter: 2012Q1

REPORT INFORMATION
  Report Type: 
  Country: None (occurrence: None)
  Receive Date: 20120314
  Receipt Date: 20120308
  Transmission Date: 20120608
  Serious: Yes (Hospitalization, Disabling, Other)
  Sender: FDA-Public Use
  Company Number: PHHO2012US003005

PATIENT
  Sex: Female
  Weight: 85.3 kg

DRUGS (4)
  1. PREDNISONE TAB [Suspect]
     Indication: PROPHYLAXIS
     Dosage: 2 DOSES OF 50 MG
     Dates: start: 20120222, end: 20120222
  2. BLINDED ALISKIREN [Suspect]
     Indication: CARDIOVASCULAR DISORDER
     Dosage: CODE NOT BROKEN
     Route: 048
     Dates: start: 20080326, end: 20111221
  3. BLINDED PLACEBO [Suspect]
     Indication: CARDIOVASCULAR DISORDER
     Dosage: CODE NOT BROKEN
     Route: 048
     Dates: start: 20080326, end: 20111221
  4. BLINDED NO TREATMENT RECEIVED [Suspect]
     Indication: CARDIOVASCULAR DISORDER
     Dosage: CODE NOT BROKEN
     Route: 048
     Dates: start: 20080326, end: 20111221

REACTIONS (3)
  - ACUTE PULMONARY OEDEMA [None]
  - CAROTID ARTERY DISEASE [None]
  - CORONARY ARTERY DISEASE [None]
